FAERS Safety Report 6206171-9 (Version None)
Quarter: 2009Q2

REPORT INFORMATION
  Report Type: 
  Country: None (occurrence: None)
  Receive Date: 20090528
  Receipt Date: 20081021
  Transmission Date: 20091009
  Serious: No
  Sender: FDA-Public Use
  Company Number: US-KINGPHARMUSA00001-K200801217

PATIENT
  Sex: Female

DRUGS (3)
  1. AVINZA [Suspect]
     Dosage: 90 MG, UNK
  2. AVINZA [Suspect]
     Dosage: 60 MG, UNK
  3. AVINZA [Suspect]
     Dosage: 30 MG, UNK

REACTIONS (1)
  - OEDEMA PERIPHERAL [None]
